APPROVED DRUG PRODUCT: CEVIMELINE HYDROCHLORIDE
Active Ingredient: CEVIMELINE HYDROCHLORIDE
Strength: 30MG
Dosage Form/Route: CAPSULE;ORAL
Application: A204746 | Product #001 | TE Code: AB
Applicant: NOVEL LABORATORIES INC
Approved: Dec 30, 2016 | RLD: No | RS: No | Type: RX